FAERS Safety Report 7238381-6 (Version None)
Quarter: 2011Q1

REPORT INFORMATION
  Report Type: 
  Country: None (occurrence: None)
  Receive Date: 20110121
  Receipt Date: 20110119
  Transmission Date: 20110831
  Serious: Yes (Hospitalization)
  Sender: FDA-Public Use
  Company Number: US-BRISTOL-MYERS SQUIBB COMPANY-15445646

PATIENT
  Age: 68 Year
  Sex: Male
  Weight: 81 kg

DRUGS (31)
  1. CISPLATIN [Suspect]
     Indication: NON-SMALL CELL LUNG CANCER
     Dosage: INTERRUPTED ON 06DEC10 RECENT INF:01DEC2010(63D); NO OF INF:4
     Route: 042
     Dates: start: 20100929
  2. DECADRON [Concomitant]
     Indication: ASTHENIA
     Dosage: 4MG PO 10NOV10
     Route: 042
     Dates: start: 20101006
  3. ATENOLOL [Concomitant]
     Indication: ANGINA PECTORIS
     Route: 048
     Dates: start: 20000101
  4. METFORMIN [Concomitant]
     Indication: DIABETES MELLITUS
     Route: 048
     Dates: start: 20090901
  5. NITROGLYCERIN [Concomitant]
     Indication: ANGINA PECTORIS
     Route: 048
     Dates: start: 20000101
  6. INSULIN [Concomitant]
     Indication: DIABETES MELLITUS
     Dosage: 1DF=FOR EACH 10 PTS GREATER THAN 140/MAX 25U
     Route: 058
     Dates: start: 20100821
  7. NITROGLYCERIN [Concomitant]
     Indication: ANGINA PECTORIS
     Dosage: NITRO SPRAY PUMP
     Route: 048
     Dates: start: 20000101
  8. COMPAZINE [Concomitant]
     Indication: NAUSEA
     Route: 048
     Dates: start: 20100929
  9. HYOSCYAMINE [Concomitant]
     Indication: COUGH
     Route: 048
     Dates: start: 20101027
  10. GEMCITABINE [Suspect]
     Indication: NON-SMALL CELL LUNG CANCER
     Dosage: INTERRUPTED ON 06DEC10 RECENT INF:01DEC2010(63D); NO OF INF:7
     Route: 042
     Dates: start: 20100929
  11. AMLODIPINE [Concomitant]
     Indication: BLOOD PRESSURE
     Route: 048
     Dates: start: 20000101
  12. ALBUTEROL [Concomitant]
     Indication: CHRONIC OBSTRUCTIVE PULMONARY DISEASE
     Dosage: 2 PUFFS
     Route: 055
     Dates: start: 20000101
  13. DRONABINOL [Concomitant]
     Indication: NAUSEA
     Route: 065
  14. CLARITIN [Concomitant]
     Indication: HYPERSENSITIVITY
     Route: 048
     Dates: start: 20100912
  15. PRAVASTATIN SODIUM [Concomitant]
     Indication: BLOOD CHOLESTEROL INCREASED
     Route: 048
     Dates: start: 20000101
  16. MARINOL [Concomitant]
     Indication: NAUSEA
     Route: 048
     Dates: start: 20101103
  17. CETUXIMAB [Suspect]
     Indication: NON-SMALL CELL LUNG CANCER
     Dosage: RECENT DOSE(3RD):13OCT10(14D)
     Route: 042
     Dates: start: 20100929
  18. LANTUS [Concomitant]
     Indication: DIABETES MELLITUS
     Dosage: 1DF=10 UT
     Route: 058
     Dates: start: 20100920
  19. DARVOCET [Concomitant]
     Indication: PAIN
     Dosage: 1DF:100 UNITS NOS
     Route: 048
     Dates: start: 20100924
  20. METOCLOPRAMIDE [Concomitant]
     Indication: HICCUPS
     Route: 065
  21. DECADRON [Concomitant]
     Indication: PREMEDICATION
     Dosage: 4MG PO 10NOV10
     Route: 042
     Dates: start: 20101006
  22. DECADRON [Concomitant]
     Indication: NAUSEA
     Dosage: 4MG PO 10NOV10
     Route: 042
     Dates: start: 20101006
  23. ATENOLOL [Concomitant]
     Indication: BLOOD PRESSURE
     Route: 048
     Dates: start: 20000101
  24. DIFLUCAN [Concomitant]
     Indication: CANDIDIASIS
     Dosage: TAKE FOR 6D
     Route: 048
     Dates: start: 20101110
  25. PRILOSEC [Concomitant]
     Indication: DYSPEPSIA
     Route: 048
     Dates: start: 20101006
  26. MARINOL [Concomitant]
     Indication: APPETITE DISORDER
     Route: 048
     Dates: start: 20101103
  27. NOVOLIN R [Concomitant]
  28. ANZEMET [Concomitant]
     Indication: NAUSEA
     Route: 048
     Dates: start: 20101110
  29. CLARITIN [Concomitant]
     Indication: COUGH
     Route: 048
     Dates: start: 20100912
  30. WELLBUTRIN SR [Concomitant]
     Indication: DEPRESSION
     Route: 048
     Dates: start: 20000101
  31. ATIVAN [Concomitant]
     Indication: NAUSEA
     Dosage: 1DF=0.5-1MG
     Route: 048
     Dates: start: 20100929

REACTIONS (1)
  - PULMONARY EMBOLISM [None]
